FAERS Safety Report 6695796-2 (Version None)
Quarter: 2010Q2

REPORT INFORMATION
  Report Type: 
  Country: None (occurrence: None)
  Receive Date: 20100423
  Receipt Date: 20100423
  Transmission Date: 20101027
  Serious: No
  Sender: FDA-Public Use
  Company Number: None

PATIENT
  Age: 44 Year
  Sex: Female
  Weight: 54.4316 kg

DRUGS (1)
  1. NASONEX [Suspect]
     Indication: MULTIPLE ALLERGIES
     Dosage: 2 SPRAYS EACH NOSTRIL DAILY NASAL
     Route: 045
     Dates: start: 20100311, end: 20100319

REACTIONS (1)
  - EPISTAXIS [None]
